FAERS Safety Report 15661244 (Version 2)
Quarter: 2018Q4

REPORT INFORMATION
  Report Type: Report from Study
  Country: US (occurrence: US)
  Receive Date: 20181127
  Receipt Date: 20181221
  Transmission Date: 20190205
  Serious: Yes (Hospitalization)
  Sender: FDA-Public Use
  Company Number: PHHY2018US164211

PATIENT
  Age: 16 Year
  Sex: Male
  Weight: 63.3 kg

DRUGS (7)
  1. METHOTREXATE. [Concomitant]
     Active Substance: METHOTREXATE
     Indication: STILL^S DISEASE
     Dosage: 10 MG, UNK
     Route: 065
     Dates: start: 20180301, end: 20180521
  2. METHOTREXATE. [Concomitant]
     Active Substance: METHOTREXATE
     Dosage: 17.5 MG, UNK
     Route: 065
     Dates: start: 20180709
  3. KINERET [Suspect]
     Active Substance: ANAKINRA
     Indication: STILL^S DISEASE
     Dosage: 100 MG, UNK
     Route: 065
     Dates: start: 20180112, end: 20180219
  4. METHOTREXATE. [Concomitant]
     Active Substance: METHOTREXATE
     Dosage: 15 MG, UNK
     Route: 065
     Dates: start: 20180521, end: 20180709
  5. KINERET [Suspect]
     Active Substance: ANAKINRA
     Dosage: 100 MG, UNK
     Route: 065
     Dates: start: 20180219
  6. ILARIS [Suspect]
     Active Substance: CANAKINUMAB
     Indication: STILL^S DISEASE
     Route: 065
  7. NAPROXEN. [Concomitant]
     Active Substance: NAPROXEN
     Indication: STILL^S DISEASE
     Dosage: 375 MG, UNK
     Route: 065
     Dates: start: 20180112

REACTIONS (7)
  - Rash [Recovering/Resolving]
  - Pyrexia [Recovering/Resolving]
  - Cough [Recovering/Resolving]
  - Serum ferritin decreased [Unknown]
  - Arthralgia [Recovering/Resolving]
  - Respiratory tract congestion [Recovering/Resolving]
  - Haemophagocytic lymphohistiocytosis [Recovered/Resolved]

NARRATIVE: CASE EVENT DATE: 20180219
